FAERS Safety Report 5409240-6 (Version None)
Quarter: 2007Q3

REPORT INFORMATION
  Report Type: 
  Country: None (occurrence: None)
  Receive Date: 20070808
  Receipt Date: 20070808
  Transmission Date: 20080115
  Serious: Yes (Hospitalization)
  Sender: FDA-Public Use
  Company Number: None

PATIENT
  Sex: Male
  Weight: 79.6 kg

DRUGS (3)
  1. OXALIPLATIN [Suspect]
     Indication: HEPATIC NEOPLASM MALIGNANT
     Dosage: 50MG/M2 D1 AND 8 Q21DAYS IV
     Route: 042
     Dates: start: 20070608
  2. OXALIPLATIN [Suspect]
     Indication: HEPATIC NEOPLASM MALIGNANT
     Dosage: 50MG/M2 D1 AND 8 Q21DAYS IV
     Route: 042
     Dates: start: 20070615
  3. XELODA [Suspect]
     Indication: HEPATIC NEOPLASM MALIGNANT
     Dosage: 750MG/M2 BID D1-14 Q21DAYS PO
     Route: 048
     Dates: start: 20070608, end: 20070621

REACTIONS (5)
  - BACTERIA STOOL IDENTIFIED [None]
  - CLOSTRIDIUM DIFFICILE COLITIS [None]
  - DIVERTICULUM [None]
  - HAEMATOCRIT DECREASED [None]
  - HAEMOGLOBIN DECREASED [None]
